FAERS Safety Report 5753235-X (Version None)
Quarter: 2008Q2

REPORT INFORMATION
  Report Type: 
  Country: None (occurrence: None)
  Receive Date: 20080530
  Receipt Date: 20070508
  Transmission Date: 20081010
  Serious: No
  Sender: FDA-Public Use
  Company Number: A0650432A

PATIENT
  Sex: Female

DRUGS (1)
  1. VENTOLIN [Suspect]
     Indication: ASTHMA
     Route: 065

REACTIONS (2)
  - ASTHENIA [None]
  - TREMOR [None]
